FAERS Safety Report 6971064-6 (Version None)
Quarter: 2010Q3

REPORT INFORMATION
  Report Type: 
  Country: None (occurrence: None)
  Receive Date: 20100908
  Receipt Date: 20100827
  Transmission Date: 20110219
  Serious: Yes (Other)
  Sender: FDA-Public Use
  Company Number: US-PFIZER INC-2010108656

PATIENT
  Sex: Female
  Weight: 49.887 kg

DRUGS (6)
  1. ZYVOX [Suspect]
     Indication: NOCARDIOSIS
     Dosage: 500 MG, 2X/DAY
     Dates: start: 20100101, end: 20100801
  2. PREDNISONE [Concomitant]
     Indication: ASTHMA
     Dosage: 10 MG, 1X/DAY
     Dates: start: 20100710
  3. ADVAIR DISKUS 100/50 [Concomitant]
     Indication: ASTHMA
     Dosage: 500 UG, 2X/DAY
     Dates: start: 20090401
  4. SINGULAIR [Concomitant]
     Indication: ASTHMA
     Dosage: 10 MG, 1X/DAY
     Dates: start: 20090401
  5. SYNTHROID [Concomitant]
     Indication: HYPOTHYROIDISM
     Dosage: 0.88 MG, 1X/DAY
  6. ZYRTEC [Concomitant]
     Indication: HYPERSENSITIVITY
     Dosage: UNK

REACTIONS (4)
  - ASPERGILLOSIS [None]
  - HYPOAESTHESIA [None]
  - LOWER RESPIRATORY TRACT INFECTION BACTERIAL [None]
  - PARAESTHESIA [None]
